FAERS Safety Report 5118905-5 (Version None)
Quarter: 2006Q3

REPORT INFORMATION
  Report Type: 
  Country: None (occurrence: None)
  Receive Date: 20060927
  Receipt Date: 20060911
  Transmission Date: 20061208
  Serious: Yes (Life-Threatening, Hospitalization)
  Sender: FDA-Public Use
  Company Number: DSA_28708_2006

PATIENT
  Age: 90 Year
  Sex: Female

DRUGS (3)
  1. ORFIDAL [Suspect]
     Dosage: DF PO
     Route: 048
     Dates: end: 20050919
  2. DILUTOL [Suspect]
     Dosage: 5 MG QD PO
     Route: 048
     Dates: start: 20050428, end: 20050919
  3. CESPLON PLUS [Suspect]
     Dosage: 1 DF QD PO
     Route: 048
     Dates: start: 19950101, end: 20050919

REACTIONS (1)
  - RENAL IMPAIRMENT [None]
